FAERS Safety Report 12140307 (Version 1)
Quarter: 2016Q1

REPORT INFORMATION
  Report Type: Spontaneous
  Country: US (occurrence: US)
  Receive Date: 20160303
  Receipt Date: 20160303
  Transmission Date: 20160526
  Serious: No
  Sender: FDA-Public Use
  Company Number: US-PFIZER INC-2016105054

PATIENT
  Age: 80 Year
  Sex: Female

DRUGS (1)
  1. XANAX [Suspect]
     Active Substance: ALPRAZOLAM
     Dosage: 0.25MG PILLS,  2 IN THE MORNING, 2 AT LUNCH AND 2 AT NIGHT
     Route: 048

REACTIONS (1)
  - Abdominal pain upper [Unknown]
